FAERS Safety Report 7241747-1 (Version None)
Quarter: 2011Q1

REPORT INFORMATION
  Report Type: 
  Country: None (occurrence: None)
  Receive Date: 20110124
  Receipt Date: 20110113
  Transmission Date: 20110831
  Serious: Yes (Hospitalization)
  Sender: FDA-Public Use
  Company Number: US-SANOFI-AVENTIS-2010SA078501

PATIENT
  Age: 66 Year
  Sex: Male
  Weight: 87.3 kg

DRUGS (21)
  1. DOCETAXEL [Suspect]
     Indication: PROSTATE CANCER
     Route: 041
     Dates: start: 20100813, end: 20100813
  2. INVESTIGATIONAL DRUG [Suspect]
     Route: 042
     Dates: start: 20100907, end: 20100907
  3. TAMSULOSIN [Concomitant]
     Dates: start: 20090101
  4. OXYCODONE [Concomitant]
     Dates: start: 20101116
  5. JEVITY [Concomitant]
     Dates: start: 20100824
  6. DOCETAXEL [Suspect]
     Route: 041
     Dates: start: 20101210, end: 20101210
  7. INVESTIGATIONAL DRUG [Suspect]
     Indication: PROSTATE CANCER
     Route: 042
     Dates: start: 20100810, end: 20100810
  8. ELIGARD [Concomitant]
     Dates: start: 20100407
  9. PROCTOCORT [Concomitant]
     Dates: start: 20100729
  10. FAMOTIDINE [Concomitant]
     Dates: start: 20100910
  11. VITAMIN B COMPLEX CAP [Concomitant]
     Dates: start: 20101214
  12. TAMSULOSIN HYDROCHLORIDE [Concomitant]
     Dates: start: 20100803
  13. AVODART [Concomitant]
     Dates: start: 20090101
  14. LEVOTHYROXINE [Concomitant]
     Dates: start: 20100505
  15. DEXAMETHASONE [Concomitant]
     Dates: start: 20100810
  16. NEURONTIN [Concomitant]
     Dates: start: 20101207
  17. GRANISETRON HCL [Concomitant]
     Dates: start: 20100810
  18. PALONOSETRON [Concomitant]
     Dates: start: 20100811
  19. NORMAL SALINE [Concomitant]
     Dates: start: 20101112
  20. INVESTIGATIONAL DRUG [Suspect]
     Route: 042
     Dates: start: 20101207, end: 20101207
  21. MIRALAX [Concomitant]
     Dates: start: 20100914

REACTIONS (9)
  - ANAEMIA [None]
  - MUCOSAL INFLAMMATION [None]
  - FEBRILE NEUTROPENIA [None]
  - THROMBOCYTOPENIA [None]
  - OBSTRUCTIVE UROPATHY [None]
  - NEUTROPENIA [None]
  - THROMBOSIS [None]
  - LEUKOPENIA [None]
  - ATRIAL FIBRILLATION [None]
